FAERS Safety Report 14793962 (Version 1)
Quarter: 2018Q2

REPORT INFORMATION
  Report Type: Spontaneous
  Country: PT (occurrence: PT)
  Receive Date: 20180423
  Receipt Date: 20180423
  Transmission Date: 20180711
  Serious: Yes (Other)
  Sender: FDA-Public Use
  Company Number: PT-GLAXOSMITHKLINE-PT2018063820

PATIENT
  Age: 2 Month
  Sex: Male

DRUGS (4)
  1. CEFUROXIME. [Suspect]
     Active Substance: CEFUROXIME
     Indication: KAWASAKI^S DISEASE
     Dosage: 100 MG/KG, Q8H
     Route: 042
  2. ACETYLSALICYLIC ACID [Suspect]
     Active Substance: ASPIRIN
     Dosage: 80 MG/KG, Q6H
     Route: 065
  3. ACETYLSALICYLIC ACID [Suspect]
     Active Substance: ASPIRIN
     Indication: PRODUCT USED FOR UNKNOWN INDICATION
     Dosage: 5 MG/KG, QD
     Route: 065
  4. ACETYLSALICYLIC ACID [Suspect]
     Active Substance: ASPIRIN
     Dosage: 50 MG/KG, QD
     Route: 065

REACTIONS (5)
  - Pyrexia [Recovered/Resolved]
  - Drug ineffective [Unknown]
  - Normochromic normocytic anaemia [Recovered/Resolved]
  - Rash maculo-papular [Recovered/Resolved]
  - Tachycardia [Recovered/Resolved]
